FAERS Safety Report 15668871 (Version 1)
Quarter: 2018Q4

REPORT INFORMATION
  Report Type: Spontaneous
  Country: AT (occurrence: AT)
  Receive Date: 20181129
  Receipt Date: 20181129
  Transmission Date: 20190205
  Serious: Yes (Other)
  Sender: FDA-Public Use
  Company Number: AT-TAKEDA-2018TUS033946

PATIENT
  Age: 54 Year
  Sex: Male

DRUGS (1)
  1. ENTYVIO [Suspect]
     Active Substance: VEDOLIZUMAB
     Indication: CROHN^S DISEASE
     Dosage: UNK
     Route: 065
     Dates: start: 201411, end: 201806

REACTIONS (3)
  - Drug ineffective [Unknown]
  - Gastrointestinal fistula [Recovered/Resolved]
  - Abdominal abscess [Recovered/Resolved]
